FAERS Safety Report 19827556 (Version 1)
Quarter: 2021Q3

REPORT INFORMATION
  Report Type: Spontaneous
  Country: US (occurrence: US)
  Receive Date: 20210914
  Receipt Date: 20210914
  Transmission Date: 20211014
  Serious: No
  Sender: FDA-Public Use
  Company Number: US-JNJFOC-20210861058

PATIENT

DRUGS (1)
  1. ZYRTEC [Suspect]
     Active Substance: CETIRIZINE HYDROCHLORIDE
     Indication: PRODUCT USED FOR UNKNOWN INDICATION
     Dosage: YEARS OF DAILY USE
     Route: 065

REACTIONS (3)
  - Pruritus [Recovered/Resolved]
  - Formication [Recovered/Resolved]
  - Withdrawal syndrome [Recovered/Resolved]
